FAERS Safety Report 7332960-3 (Version None)
Quarter: 2011Q1

REPORT INFORMATION
  Report Type: 
  Country: None (occurrence: None)
  Receive Date: 20110304
  Receipt Date: 20110221
  Transmission Date: 20110831
  Serious: Yes (Disabling)
  Sender: FDA-Public Use
  Company Number: GB-JNJFOC-2007003359

PATIENT
  Age: 50 Year
  Sex: Female

DRUGS (6)
  1. CETIRIZINE HCL [Suspect]
     Route: 048
     Dates: start: 20061119, end: 20061124
  2. CETIRIZINE HCL [Suspect]
     Indication: PRURITUS
     Dosage: DAILY DOSE QTY: 10 MG
     Route: 048
     Dates: start: 20061119, end: 20061124
  3. DERMOVATE [Concomitant]
     Indication: PRURITUS
     Dosage: FREQUENCY TEXT: AS NECESSARY
     Route: 061
  4. FLUTICASONE PROPIONATE [Concomitant]
     Indication: ASTHMA
     Route: 048
  5. PRILOSEC [Concomitant]
     Indication: DYSPEPSIA
     Dosage: DAILY DOSE QTY: 20 MG
     Route: 048
  6. FORADIL [Concomitant]
     Indication: ASTHMA
     Route: 048

REACTIONS (3)
  - LIP HAEMORRHAGE [None]
  - MOUTH ULCERATION [None]
  - GINGIVITIS [None]
